FAERS Safety Report 22201504 (Version 4)
Quarter: 2023Q2

REPORT INFORMATION
  Report Type: Spontaneous
  Country: US (occurrence: US)
  Receive Date: 20230412
  Receipt Date: 20230531
  Transmission Date: 20230721
  Serious: No
  Sender: FDA-Public Use
  Company Number: US-PFIZER INC-202300138757

PATIENT
  Age: 12 Year
  Sex: Male

DRUGS (2)
  1. GENOTROPIN [Suspect]
     Active Substance: SOMATROPIN
     Indication: Growth hormone deficiency
     Dosage: ALTERNATING DOSE OF 1 MG AND 1.2 MG (TO AVERAGE 1.1 MG)
     Dates: start: 2013
  2. GENOTROPIN [Suspect]
     Active Substance: SOMATROPIN
     Dosage: ALTERNATING DOSE OF 1 MG AND 1.2 MG (TO AVERAGE 1.1 MG)
     Dates: start: 2013

REACTIONS (3)
  - Incorrect dose administered by device [Unknown]
  - Poor quality device used [Unknown]
  - Device breakage [Unknown]

NARRATIVE: CASE EVENT DATE: 20230328
